FAERS Safety Report 8197672-5 (Version None)
Quarter: 2012Q1

REPORT INFORMATION
  Report Type: 
  Country: None (occurrence: None)
  Receive Date: 20120309
  Receipt Date: 20120302
  Transmission Date: 20120608
  Serious: Yes (Hospitalization)
  Sender: FDA-Public Use
  Company Number: JP-PFIZER INC-2012055960

PATIENT
  Age: 84 Year
  Sex: Male

DRUGS (11)
  1. SEREVENT [Concomitant]
     Dosage: UNK
  2. MUCOSOLVAN [Concomitant]
     Dosage: UNK
  3. FLUTICASONE PROPIONATE [Concomitant]
     Dosage: UNK
  4. PLAVIX [Concomitant]
     Dosage: UNK
  5. SENNA-MINT WAF [Concomitant]
     Dosage: UNK
  6. ASPIRIN [Concomitant]
     Dosage: UNK
  7. LYRICA [Suspect]
     Indication: NEURALGIA
     Dosage: 75 MG, 2X/DAY
     Route: 048
     Dates: start: 20100806, end: 20120208
  8. THEO-DUR [Concomitant]
     Dosage: UNK
  9. CANDESARTAN CILEXETIL [Concomitant]
     Dosage: UNK
  10. LIVALO [Concomitant]
     Dosage: UNK
  11. ADVAIR DISKUS 100/50 [Concomitant]
     Dosage: UNK

REACTIONS (3)
  - FACE OEDEMA [None]
  - ARTHROPATHY [None]
  - HYPOAESTHESIA [None]
